FAERS Safety Report 9826822 (Version 2)
Quarter: 2013Q4

REPORT INFORMATION
  Report Type: Spontaneous
  Country: US (occurrence: None)
  Receive Date: 20131223
  Receipt Date: 20131223
  Transmission Date: 20140711
  Serious: Yes (Other)
  Sender: FDA-Public Use
  Company Number: 221369LEO

PATIENT
  Sex: Male

DRUGS (1)
  1. PICATO [Suspect]
     Indication: NEOPLASM MALIGNANT
     Route: 061
     Dates: start: 201303

REACTIONS (2)
  - Drug ineffective [None]
  - Off label use [None]
